FAERS Safety Report 22217178 (Version 2)
Quarter: 2023Q2

REPORT INFORMATION
  Report Type: Spontaneous
  Country: US (occurrence: US)
  Receive Date: 20230417
  Receipt Date: 20230602
  Transmission Date: 20230722
  Serious: No
  Sender: FDA-Public Use
  Company Number: US-SA-SAC20230414001275

PATIENT
  Sex: Female

DRUGS (1)
  1. DUPIXENT [Suspect]
     Active Substance: DUPILUMAB
     Indication: Product used for unknown indication
     Dosage: 300 MG; FREQUENCY: OTHER
     Route: 058

REACTIONS (3)
  - Injection site pain [Unknown]
  - Otitis media acute [Unknown]
  - Dry eye [Unknown]
